FAERS Safety Report 9881640 (Version 2)
Quarter: 2014Q1

REPORT INFORMATION
  Report Type: Spontaneous
  Country: US (occurrence: US)
  Receive Date: 20140207
  Receipt Date: 20140207
  Transmission Date: 20141002
  Serious: No
  Sender: FDA-Public Use
  Company Number: US-B.I. PHARMACEUTICALS,INC./RIDGEFIELD-2013-BI-30297BP

PATIENT
  Age: 77 Year
  Sex: Female
  Weight: 102.51 kg

DRUGS (14)
  1. PRADAXA [Suspect]
     Indication: PRODUCT USED FOR UNKNOWN INDICATION
     Dosage: 300 MG
     Route: 048
     Dates: start: 20120613, end: 20121217
  2. INSULIN [Concomitant]
     Indication: DIABETES MELLITUS
     Dosage: 47 U
     Route: 058
  3. INSULIN [Concomitant]
  4. LEVOTHYROXINE [Concomitant]
     Indication: HYPOTHYROIDISM
     Dosage: 112 MCG
     Route: 048
  5. GLUCOPHAGE [Concomitant]
     Dosage: 1000 MG
     Route: 048
  6. LOPRESSOR [Concomitant]
     Dosage: 200 MG
     Route: 048
  7. GLUCOTROL [Concomitant]
     Dosage: 20 MG
     Route: 048
  8. LOTENSIN [Concomitant]
     Dosage: 80 MG
     Route: 048
  9. XOPENEX [Concomitant]
     Route: 055
  10. CARDURA [Concomitant]
     Dosage: 8 MG
     Route: 048
  11. LASIX [Concomitant]
     Dosage: 10 MG
     Route: 048
  12. SYMBICORT [Concomitant]
     Dosage: 4 PUF
     Route: 048
  13. ZOCOR [Concomitant]
     Dosage: 40 MG
     Route: 048
  14. ALBUTEROL [Concomitant]

REACTIONS (4)
  - Gastrointestinal haemorrhage [Unknown]
  - Abdominal wall haematoma [Unknown]
  - Gastroenteritis viral [Unknown]
  - Vomiting [Unknown]
